FAERS Safety Report 6996384-0 (Version None)
Quarter: 2010Q3

REPORT INFORMATION
  Report Type: 
  Country: None (occurrence: None)
  Receive Date: 20100918
  Receipt Date: 20090225
  Transmission Date: 20110219
  Serious: No
  Sender: FDA-Public Use
  Company Number: US-WYE-H07924809

PATIENT
  Sex: Male
  Weight: 108.96 kg

DRUGS (10)
  1. EFFEXOR [Suspect]
     Indication: DEPRESSION
     Route: 048
     Dates: start: 20030101, end: 20090101
  2. EFFEXOR [Suspect]
     Indication: ANXIETY
     Route: 048
     Dates: start: 20090115, end: 20090119
  3. EFFEXOR [Suspect]
     Route: 048
     Dates: start: 20090120, end: 20090122
  4. EFFEXOR [Suspect]
     Route: 048
     Dates: start: 20090123, end: 20090123
  5. ASPIRIN [Concomitant]
  6. METFORMIN [Concomitant]
  7. COREG [Concomitant]
  8. AMLODIPINE [Concomitant]
  9. PLAVIX [Concomitant]
  10. SIMVASTATIN [Concomitant]

REACTIONS (8)
  - ARTHRALGIA [None]
  - BACK PAIN [None]
  - DIZZINESS [None]
  - DRUG WITHDRAWAL SYNDROME [None]
  - HYPERSOMNIA [None]
  - LIBIDO DECREASED [None]
  - MUSCULOSKELETAL PAIN [None]
  - NAUSEA [None]
